FAERS Safety Report 9485703 (Version 1)
Quarter: 2013Q3

REPORT INFORMATION
  Report Type: Spontaneous
  Country: US (occurrence: None)
  Receive Date: 20130827
  Receipt Date: 20130827
  Transmission Date: 20140515
  Serious: No
  Sender: FDA-Public Use
  Company Number: None

PATIENT
  Age: 48 Year
  Sex: Male
  Weight: 90 kg

DRUGS (8)
  1. AMITRIPTYLINE [Suspect]
     Route: 048
  2. SERTRALINE [Suspect]
     Route: 048
  3. BUTRANS [Concomitant]
  4. CYMBALTA [Concomitant]
  5. ELAVIL [Concomitant]
  6. ENBREL [Concomitant]
  7. NEXIUM [Concomitant]
  8. ZOLOFT [Concomitant]

REACTIONS (2)
  - Anastomotic leak [None]
  - Muscle twitching [None]
